FAERS Safety Report 25807185 (Version 1)
Quarter: 2025Q3

REPORT INFORMATION
  Report Type: Spontaneous
  Country: BR (occurrence: BR)
  Receive Date: 20250916
  Receipt Date: 20250916
  Transmission Date: 20251021
  Serious: Yes (Life-Threatening, Hospitalization)
  Sender: MYLAN
  Company Number: BR-MYLANLABS-2025M1078110

PATIENT
  Age: 2 Year
  Sex: Female

DRUGS (8)
  1. VANCOMYCIN [Suspect]
     Active Substance: VANCOMYCIN
     Indication: Evidence based treatment
  2. VANCOMYCIN [Suspect]
     Active Substance: VANCOMYCIN
     Route: 065
  3. VANCOMYCIN [Suspect]
     Active Substance: VANCOMYCIN
     Route: 065
  4. VANCOMYCIN [Suspect]
     Active Substance: VANCOMYCIN
  5. MEROPENEM [Suspect]
     Active Substance: MEROPENEM
     Indication: Evidence based treatment
  6. MEROPENEM [Suspect]
     Active Substance: MEROPENEM
     Route: 065
  7. MEROPENEM [Suspect]
     Active Substance: MEROPENEM
     Route: 065
  8. MEROPENEM [Suspect]
     Active Substance: MEROPENEM

REACTIONS (3)
  - Necrotising fasciitis [Recovering/Resolving]
  - Stenotrophomonas infection [Recovering/Resolving]
  - Septic shock [Unknown]
